APPROVED DRUG PRODUCT: STEGLUJAN
Active Ingredient: ERTUGLIFLOZIN; SITAGLIPTIN PHOSPHATE
Strength: 15MG;EQ 100MG BASE
Dosage Form/Route: TABLET;ORAL
Application: N209805 | Product #002
Applicant: MERCK SHARP AND DOHME LLC A SUB OF MERCK AND CO INC
Approved: Dec 19, 2017 | RLD: Yes | RS: Yes | Type: RX

PATENTS:
Patent 8080580 | Expires: Jul 13, 2030
Patent 7326708 | Expires: Nov 24, 2026
Patent 9439901 | Expires: Oct 21, 2030
Patent 9308204 | Expires: Oct 21, 2030
Patent 7326708*PED | Expires: May 24, 2027